FAERS Safety Report 6230972-4 (Version None)
Quarter: 2009Q2

REPORT INFORMATION
  Report Type: 
  Country: None (occurrence: None)
  Receive Date: 20090616
  Receipt Date: 20090611
  Transmission Date: 20091009
  Serious: Yes (Other)
  Sender: FDA-Public Use
  Company Number: JP-PFIZER INC-2009167670

PATIENT
  Age: 64 Year

DRUGS (19)
  1. ZYVOX [Suspect]
     Indication: SPONDYLITIS
     Dosage: UNK
     Route: 048
     Dates: start: 20090105, end: 20090114
  2. ZYVOX [Suspect]
     Dosage: UNK
     Route: 048
     Dates: start: 20090131, end: 20090220
  3. ZYVOX [Suspect]
     Dosage: UNK
     Route: 042
     Dates: start: 20090121, end: 20090130
  4. TAKEPRON [Concomitant]
     Route: 048
  5. ASPIRIN [Concomitant]
     Route: 048
  6. PREDONINE [Concomitant]
  7. PLETAL [Concomitant]
     Route: 048
  8. WARFARIN POTASSIUM [Concomitant]
     Route: 048
  9. NEUROTROPIN [Concomitant]
     Route: 048
  10. MUCOSTA [Concomitant]
     Route: 048
  11. LOXONIN [Concomitant]
     Route: 048
  12. AMOBAN [Concomitant]
     Route: 048
  13. FLUNITRAZEPAM [Concomitant]
     Route: 048
  14. RIZE [Concomitant]
     Route: 048
  15. LEPETAN [Concomitant]
     Route: 042
  16. ANTEBATE [Concomitant]
  17. BIOFERMIN R [Concomitant]
     Route: 048
  18. TARGOCID [Concomitant]
     Route: 042
  19. PANSPORIN [Concomitant]
     Route: 042

REACTIONS (1)
  - DEAFNESS UNILATERAL [None]
